FAERS Safety Report 5507437-8 (Version None)
Quarter: 2007Q4

REPORT INFORMATION
  Report Type: 
  Country: None (occurrence: None)
  Receive Date: 20071106
  Receipt Date: 20070921
  Transmission Date: 20080405
  Serious: No
  Sender: FDA-Public Use
  Company Number: SE-SHR-SE-2007-027233

PATIENT
  Age: 46 Year
  Sex: Male

DRUGS (6)
  1. SOTALOL HYDROCHLORIDE [Suspect]
  2. WARFARIN SODIUM [Suspect]
  3. ATORVASTATIN CALCIUM [Suspect]
  4. BETAPACE [Suspect]
     Dosage: UNK, UNK
     Dates: start: 20000201, end: 20000301
  5. BETAPACE AF [Suspect]
     Dosage: 200 MG, UNK
     Dates: start: 20000301
  6. BETAPACE AF [Suspect]
     Dosage: 480 MG, UNK

REACTIONS (3)
  - AMYOTROPHIC LATERAL SCLEROSIS [None]
  - ASTHENIA [None]
  - THROMBOSIS [None]
